FAERS Safety Report 21773329 (Version 3)
Quarter: 2023Q1

REPORT INFORMATION
  Report Type: Spontaneous
  Country: AU (occurrence: AU)
  Receive Date: 20221223
  Receipt Date: 20230310
  Transmission Date: 20230417
  Serious: Yes (Hospitalization)
  Sender: FDA-Public Use
  Company Number: AU-OTSUKA-2022_055613

PATIENT
  Sex: Female

DRUGS (3)
  1. ARIPIPRAZOLE [Suspect]
     Active Substance: ARIPIPRAZOLE
     Indication: Product used for unknown indication
     Dosage: 15 MG, IN THE MORNING
     Route: 065
     Dates: start: 2021
  2. ARIPIPRAZOLE [Suspect]
     Active Substance: ARIPIPRAZOLE
     Dosage: 15 MG, IN THE MORNING
     Route: 065
     Dates: start: 20220701
  3. ABILIFY MAINTENA [Suspect]
     Active Substance: ARIPIPRAZOLE
     Indication: Product used for unknown indication
     Dosage: 400 MG
     Route: 065
     Dates: start: 2021

REACTIONS (23)
  - Dysgraphia [Unknown]
  - Dehydration [Unknown]
  - Herpes zoster [Unknown]
  - Gastrointestinal pain [Unknown]
  - Oropharyngeal discomfort [Unknown]
  - Malaise [Unknown]
  - Peripheral swelling [Unknown]
  - Pain of skin [Unknown]
  - Pain of skin [Unknown]
  - Gingival pain [Unknown]
  - Feeling abnormal [Unknown]
  - Confusional state [Unknown]
  - Abdominal pain [Unknown]
  - Eye pain [Unknown]
  - Dysgeusia [Unknown]
  - Hypotension [Unknown]
  - Blood pressure diastolic decreased [Unknown]
  - Muscle tightness [Not Recovered/Not Resolved]
  - Pain [Unknown]
  - Myalgia [Unknown]
  - Dizziness [Unknown]
  - Chest pain [Unknown]
  - Headache [Unknown]

NARRATIVE: CASE EVENT DATE: 20220701
